FAERS Safety Report 23528438 (Version 1)
Quarter: 2024Q1

REPORT INFORMATION
  Report Type: Spontaneous
  Country: US (occurrence: US)
  Receive Date: 20240215
  Receipt Date: 20240215
  Transmission Date: 20240409
  Serious: Yes (Other)
  Sender: FDA-Public Use
  Company Number: US-ABBVIE-5638147

PATIENT
  Sex: Female

DRUGS (4)
  1. BOTOX [Suspect]
     Active Substance: ONABOTULINUMTOXINA
     Indication: Maternal exposure timing unspecified
     Dosage: TIME INTERVAL: AS NECESSARY
     Route: 064
     Dates: start: 20220809, end: 20220809
  2. REGLAN [Suspect]
     Active Substance: METOCLOPRAMIDE HYDROCHLORIDE
     Indication: Maternal exposure timing unspecified
     Dosage: FORM STRENGTH: 10 MILLIGRAM
     Route: 064
     Dates: start: 202210
  3. PERIACTIN [Suspect]
     Active Substance: CYPROHEPTADINE HYDROCHLORIDE
     Indication: Maternal exposure timing unspecified
     Dosage: FORM STRENGTH: 4 MILLIGRAM
     Route: 064
     Dates: start: 202210
  4. TYLENOL [Suspect]
     Active Substance: ACETAMINOPHEN
     Indication: Maternal exposure timing unspecified
     Dosage: DOSE: 500-1000 MG
     Route: 064
     Dates: start: 202210

REACTIONS (4)
  - Postnatal growth restriction [Not Recovered/Not Resolved]
  - Underweight [Not Recovered/Not Resolved]
  - Foetal exposure during pregnancy [Unknown]
  - Unevaluable event [Unknown]

NARRATIVE: CASE EVENT DATE: 20230706
